FAERS Safety Report 4372848-3 (Version None)
Quarter: 2004Q2

REPORT INFORMATION
  Report Type: 
  Country: None (occurrence: None)
  Receive Date: 20040603
  Receipt Date: 20040519
  Transmission Date: 20050107
  Serious: No
  Sender: FDA-Public Use
  Company Number: F02200400021

PATIENT
  Age: 80 Year
  Sex: Male

DRUGS (5)
  1. XATRAL - ALFUZOSIN) - TABLET PR - 10 MG [Suspect]
     Indication: BENIGN PROSTATIC HYPERPLASIA
     Dosage: 10 MG OD
     Route: 048
     Dates: start: 20010404, end: 20040413
  2. OGAST (LANSOPRAZOLE) [Concomitant]
  3. CIBADREX (HYDROCHLOROTHIAZIDE/BENAZEPRIL) [Concomitant]
  4. BROMAZEPAM [Concomitant]
  5. ALLOPURINOL [Concomitant]

REACTIONS (3)
  - GOUT [None]
  - HEPATIC NEOPLASM MALIGNANT [None]
  - PRURITUS [None]
